FAERS Safety Report 12371384 (Version 8)
Quarter: 2016Q4

REPORT INFORMATION
  Report Type: Spontaneous
  Country: US (occurrence: US)
  Receive Date: 20160516
  Receipt Date: 20161031
  Transmission Date: 20170207
  Serious: Yes (Death, Hospitalization, Disabling, Other)
  Sender: FDA-Public Use
  Company Number: US-CELGENEUS-USA-2016051036

PATIENT
  Age: 84 Year
  Sex: Male

DRUGS (3)
  1. DIOVAN [Concomitant]
     Active Substance: VALSARTAN
     Indication: PRODUCT USED FOR UNKNOWN INDICATION
     Route: 048
  2. NORVASC [Concomitant]
     Active Substance: AMLODIPINE BESYLATE
     Indication: PRODUCT USED FOR UNKNOWN INDICATION
     Route: 048
  3. REVLIMID [Suspect]
     Active Substance: LENALIDOMIDE
     Indication: MYELODYSPLASTIC SYNDROME
     Dosage: 15 MILLIGRAM
     Route: 048
     Dates: start: 201601, end: 201602

REACTIONS (11)
  - Eye infection [Unknown]
  - Nausea [Not Recovered/Not Resolved]
  - Myocardial infarction [Fatal]
  - Arrhythmia [Unknown]
  - Muscular weakness [Not Recovered/Not Resolved]
  - Abdominal pain [Recovered/Resolved]
  - Pneumonia [Unknown]
  - Splenomegaly [Unknown]
  - Myelodysplastic syndrome [Fatal]
  - Asthenia [Not Recovered/Not Resolved]
  - Night sweats [Recovered/Resolved]

NARRATIVE: CASE EVENT DATE: 2016
